FAERS Safety Report 7081387-0 (Version None)
Quarter: 2010Q4

REPORT INFORMATION
  Report Type: 
  Country: None (occurrence: None)
  Receive Date: 20101103
  Receipt Date: 20101029
  Transmission Date: 20110411
  Serious: Yes (Death)
  Sender: FDA-Public Use
  Company Number: PHHY2010US73659

PATIENT
  Sex: Male

DRUGS (3)
  1. GLEEVEC [Suspect]
     Indication: BRAIN NEOPLASM MALIGNANT
     Dosage: 400 MG DAILY
     Route: 048
     Dates: start: 20100907
  2. TEMODAR [Concomitant]
     Dosage: UNK
     Dates: start: 20100707, end: 20100721
  3. TARCEVA [Concomitant]
     Dosage: UNK
     Dates: start: 20100824, end: 20100915

REACTIONS (1)
  - DEATH [None]
